FAERS Safety Report 4342989-5 (Version None)
Quarter: 2004Q2

REPORT INFORMATION
  Report Type: 
  Country: None (occurrence: None)
  Receive Date: 20040416
  Receipt Date: 20040405
  Transmission Date: 20050107
  Serious: Yes (Disabling, Other)
  Sender: FDA-Public Use
  Company Number: 2004208263GB

PATIENT
  Age: 62 Year
  Sex: Female

DRUGS (5)
  1. CELEBREX [Suspect]
     Indication: OSTEOARTHRITIS
     Dosage: 1-2 DF DAILY, PRN, ORAL
     Route: 048
     Dates: start: 20031022, end: 20040308
  2. SERETIDE MITE (FLUTICASONE PROPIONATE) [Concomitant]
  3. SALBUTAMOL (SALBUTAMOL) [Concomitant]
  4. MONTELUKAST (MONTELUKAST) [Concomitant]
  5. PREDNISOLONE [Concomitant]

REACTIONS (2)
  - ANXIETY [None]
  - EMOTIONAL DISTRESS [None]
